FAERS Safety Report 5723678-9 (Version None)
Quarter: 2008Q2

REPORT INFORMATION
  Report Type: 
  Country: None (occurrence: None)
  Receive Date: 20080428
  Receipt Date: 20080414
  Transmission Date: 20081010
  Serious: No
  Sender: FDA-Public Use
  Company Number: US023265

PATIENT
  Sex: Female

DRUGS (2)
  1. FENTORA [Suspect]
     Indication: ABDOMINAL PAIN UPPER
     Dosage: 800 UG  UNK BUCCAL
     Route: 002
  2. FENTORA [Suspect]
     Indication: PROCEDURAL PAIN
     Dosage: 800 UG  UNK BUCCAL
     Route: 002

REACTIONS (1)
  - DRUG PRESCRIBING ERROR [None]
